FAERS Safety Report 9815754 (Version 2)
Quarter: 2014Q1

REPORT INFORMATION
  Report Type: Report from Study
  Country: US (occurrence: US)
  Receive Date: 20140114
  Receipt Date: 20140114
  Transmission Date: 20141002
  Serious: Yes (Hospitalization)
  Sender: FDA-Public Use
  Company Number: US-ROCHE-772091

PATIENT
  Age: 55 Year
  Sex: Female

DRUGS (2)
  1. GEMCITABINE HYDROCHLORIDE [Suspect]
     Indication: PANCREATIC CARCINOMA METASTATIC
     Dosage: 1000 MG/M2, OVER 30 MINUTES ON DAY 1,8 AND 15
     Route: 042
  2. VISMODEGIB [Suspect]
     Indication: PANCREATIC CARCINOMA METASTATIC
     Dosage: 150 MG, QD
     Route: 048

REACTIONS (5)
  - Hypoalbuminaemia [Recovering/Resolving]
  - Haemoglobin decreased [Unknown]
  - Vomiting [Unknown]
  - Pericardial effusion [Unknown]
  - Anaemia [Unknown]
